FAERS Safety Report 7426340-X (Version None)
Quarter: 2011Q2

REPORT INFORMATION
  Report Type: 
  Country: None (occurrence: None)
  Receive Date: 20110420
  Receipt Date: 20110414
  Transmission Date: 20111010
  Serious: Yes (Other)
  Sender: FDA-Public Use
  Company Number: B0713804A

PATIENT
  Sex: Female
  Weight: 52 kg

DRUGS (7)
  1. VINORELBINE TARTRATE [Suspect]
     Indication: BREAST CANCER
     Dosage: 50MG PER DAY
     Route: 042
     Dates: start: 20110108, end: 20110108
  2. HYSRON-H [Concomitant]
     Indication: BREAST CANCER
     Dosage: 400MG PER DAY
     Route: 048
     Dates: start: 20091003
  3. GEMCITABINE [Concomitant]
     Indication: BREAST CANCER
     Dosage: 1400MG PER DAY
     Route: 048
     Dates: start: 20100717
  4. XELODA [Suspect]
     Dosage: 2400MG PER DAY
     Route: 048
     Dates: start: 20100828
  5. TYKERB [Suspect]
     Indication: BREAST CANCER
     Dosage: 1250MG PER DAY
     Route: 048
     Dates: start: 20100828
  6. ZOMETA [Concomitant]
     Route: 042
     Dates: start: 20100717, end: 20100828
  7. PAMIDRONATE DISODIUM [Concomitant]
     Route: 042
     Dates: start: 20100918

REACTIONS (2)
  - STOMATITIS [None]
  - WHITE BLOOD CELL COUNT DECREASED [None]
